FAERS Safety Report 21529228 (Version 1)
Quarter: 2022Q4

REPORT INFORMATION
  Report Type: Spontaneous
  Country: GB (occurrence: GB)
  Receive Date: 20221031
  Receipt Date: 20221031
  Transmission Date: 20230113
  Serious: Yes (Other)
  Sender: FDA-Public Use
  Company Number: None

PATIENT
  Age: 50 Year
  Sex: Female
  Weight: 134 kg

DRUGS (13)
  1. DOXYCYCLINE [Suspect]
     Active Substance: DOXYCYCLINE
     Indication: Product used for unknown indication
     Dosage: 100 MILLIGRAM, BID (THEN ONE DAILY FOR 4 DAYS TO TREAT.)
     Route: 065
     Dates: start: 20221019
  2. AMOXICILLIN [Concomitant]
     Active Substance: AMOXICILLIN
     Dosage: 1 DOSAGE FORM, TID (FOR 5 DAYS, T...)
     Route: 065
     Dates: start: 20221020
  3. BETAMETHASONE VALERATE [Concomitant]
     Active Substance: BETAMETHASONE VALERATE
     Dosage: UNK, USE AS DIRECTED
     Route: 065
     Dates: start: 20220902, end: 20220909
  4. COCODAMOL [Concomitant]
     Active Substance: ACETAMINOPHEN\CODEINE PHOSPHATE
     Dosage: UNK, QID, TAKE 1 OR 2 4 TIMES/DAY
     Route: 065
     Dates: start: 20220303
  5. FERROUS FUMARATE [Concomitant]
     Active Substance: FERROUS FUMARATE
     Dosage: 1 DOSAGE FORM, TID
     Route: 065
     Dates: start: 20220902
  6. FOLIC ACID [Concomitant]
     Active Substance: FOLIC ACID
     Dosage: 1 DOSAGE FORM, QD
     Route: 065
     Dates: start: 20210301, end: 20221012
  7. HYDROXOCOBALAMIN [Concomitant]
     Active Substance: HYDROXOCOBALAMIN
     Dosage: UNK, AS DIRECTED
     Route: 030
     Dates: start: 20220819, end: 20220822
  8. PREDNISOLONE [Concomitant]
     Active Substance: PREDNISOLONE
     Dosage: UNK, FOR FIVE DAYS
     Route: 065
     Dates: start: 20221019
  9. QUININE [Concomitant]
     Active Substance: QUININE
     Indication: Restless legs syndrome
     Dosage: 1 DOSAGE FORM, QD (AT NIGHT PRN FOR RESTLESS LEGS)
     Route: 065
     Dates: start: 20220411
  10. QVAR [Concomitant]
     Active Substance: BECLOMETHASONE DIPROPIONATE
     Dosage: 1 DOSAGE FORM, BID
     Route: 055
     Dates: start: 20220330
  11. SERTRALINE [Concomitant]
     Active Substance: SERTRALINE HYDROCHLORIDE
     Dosage: 2 DOSAGE FORM, QD
     Route: 065
     Dates: start: 20220303
  12. WARFARIN SODIUM [Concomitant]
     Active Substance: WARFARIN SODIUM
     Dosage: USE AS DIRECTED
     Route: 065
     Dates: start: 20200419
  13. EASYHALER [Concomitant]
     Dosage: INHALE ONE TO TWO DOSES AS NEEDED
     Route: 055
     Dates: start: 20220330

REACTIONS (3)
  - Palpitations [Recovered/Resolved]
  - Vomiting [Recovered/Resolved]
  - Nausea [Unknown]

NARRATIVE: CASE EVENT DATE: 20221020
